FAERS Safety Report 4513427-4 (Version None)
Quarter: 2004Q4

REPORT INFORMATION
  Report Type: 
  Country: None (occurrence: None)
  Receive Date: 20041130
  Receipt Date: 20040929
  Transmission Date: 20050328
  Serious: No
  Sender: FDA-Public Use
  Company Number: US-BRISTOL-MYERS SQUIBB COMPANY-12716627

PATIENT
  Age: 46 Year
  Sex: Male
  Weight: 37 kg

DRUGS (5)
  1. ERBITUX [Suspect]
     Indication: RECTAL CANCER STAGE II
     Route: 042
     Dates: start: 20040922, end: 20040922
  2. BENADRYL [Concomitant]
     Indication: PREMEDICATION
     Route: 042
     Dates: start: 20040922, end: 20040922
  3. TYLENOL (CAPLET) [Concomitant]
     Indication: PREMEDICATION
     Route: 048
     Dates: start: 20040922, end: 20040922
  4. FLUOROURACIL [Concomitant]
     Route: 042
     Dates: start: 20040922, end: 20040901
  5. OXALIPLATIN [Concomitant]
     Dates: start: 20040922, end: 20040922

REACTIONS (1)
  - DERMATITIS ACNEIFORM [None]
